FAERS Safety Report 11474850 (Version 1)
Quarter: 2015Q3

REPORT INFORMATION
  Report Type: Spontaneous
  Country: US (occurrence: None)
  Receive Date: 20150908
  Receipt Date: 20150908
  Transmission Date: 20151125
  Serious: No
  Sender: FDA-Public Use
  Company Number: None

PATIENT
  Age: 39 Year
  Sex: Male

DRUGS (1)
  1. HUMIRA [Suspect]
     Active Substance: ADALIMUMAB
     Indication: PRODUCT USED FOR UNKNOWN INDICATION
     Route: 058
     Dates: start: 20150720

REACTIONS (6)
  - Erythema [None]
  - Lip blister [None]
  - Oral pain [None]
  - Pyrexia [None]
  - Pain [None]
  - Pharyngeal oedema [None]

NARRATIVE: CASE EVENT DATE: 20150810
